FAERS Safety Report 5452336-3 (Version None)
Quarter: 2007Q3

REPORT INFORMATION
  Report Type: 
  Country: None (occurrence: None)
  Receive Date: 20070914
  Receipt Date: 20070904
  Transmission Date: 20080115
  Serious: Yes (Death, Other)
  Sender: FDA-Public Use
  Company Number: CA-JNJFOC-20070703041

PATIENT
  Sex: Female
  Weight: 94.8 kg

DRUGS (3)
  1. REMICADE [Suspect]
     Route: 042
  2. REMICADE [Suspect]
     Route: 042
  3. REMICADE [Suspect]
     Indication: WEGENER'S GRANULOMATOSIS
     Route: 042

REACTIONS (2)
  - DEATH [None]
  - GALLBLADDER DISORDER [None]
